FAERS Safety Report 9980190 (Version 1)
Quarter: 2014Q1

REPORT INFORMATION
  Report Type: Report from Study
  Country: US (occurrence: US)
  Receive Date: 20140307
  Receipt Date: 20140307
  Transmission Date: 20141002
  Serious: No
  Sender: FDA-Public Use
  Company Number: US-ABBVIE-13P-163-1176117-00

PATIENT
  Sex: Female

DRUGS (11)
  1. HUMIRA [Suspect]
     Indication: RHEUMATOID ARTHRITIS
  2. LYRICA [Concomitant]
     Indication: PAIN
  3. TRAMADOL [Concomitant]
     Indication: PAIN
  4. LIDODERM [Concomitant]
     Indication: PRODUCT USED FOR UNKNOWN INDICATION
     Dosage: PATCHES
  5. ULORIC [Concomitant]
     Indication: GOUT
  6. GABAPENTIN [Concomitant]
     Indication: NEUROPATHY PERIPHERAL
  7. COLCHICINE [Concomitant]
     Indication: GOUT
  8. SYNTHROID [Concomitant]
     Indication: HYPOTHYROIDISM
  9. ALBUTEROL [Concomitant]
     Indication: ASTHMA
     Dosage: DAILY IN SUMMER MONTHS
     Route: 055
  10. LOPID [Concomitant]
     Indication: BLOOD CHOLESTEROL INCREASED
  11. METHOTREXATE [Concomitant]
     Indication: RHEUMATOID ARTHRITIS

REACTIONS (1)
  - Pain [Recovered/Resolved]
